FAERS Safety Report 17618736 (Version 1)
Quarter: 2020Q2

REPORT INFORMATION
  Report Type: Spontaneous
  Country: IT (occurrence: IT)
  Receive Date: 20200403
  Receipt Date: 20200403
  Transmission Date: 20200713
  Serious: Yes (Other)
  Sender: FDA-Public Use
  Company Number: IT-SUN PHARMACEUTICAL INDUSTRIES LTD-2020RR-242587

PATIENT

DRUGS (4)
  1. ERIBULIN [Concomitant]
     Active Substance: ERIBULIN
     Indication: LIPOSARCOMA METASTATIC
     Dosage: SEVEN CYCLES OF THERAPY WITH ERIBULIN 1.23 MG/M2 ON DAYS 1 AND 8, EVERY 21 DAYS
     Route: 065
     Dates: start: 201805, end: 201810
  2. DEXRAZOXANE. [Suspect]
     Active Substance: DEXRAZOXANE
     Indication: LIPOSARCOMA METASTATIC
     Dosage: UNK, WEEKLY
     Route: 065
  3. GEMCITABINE. [Suspect]
     Active Substance: GEMCITABINE
     Indication: LIPOSARCOMA METASTATIC
     Dosage: UNK UNK, WEEKLY
     Route: 065
  4. DOXORUBICIN [Suspect]
     Active Substance: DOXORUBICIN
     Indication: LIPOSARCOMA METASTATIC
     Dosage: UNK, WEEKLY
     Route: 065

REACTIONS (2)
  - Malignant neoplasm progression [Unknown]
  - Liposarcoma metastatic [Unknown]
